FAERS Safety Report 10204042 (Version 2)
Quarter: 2014Q3

REPORT INFORMATION
  Report Type: Report from Study
  Country: AU (occurrence: AU)
  Receive Date: 20140529
  Receipt Date: 20140725
  Transmission Date: 20150326
  Serious: Yes (Other)
  Sender: FDA-Public Use
  Company Number: AU-SA-2014SA065500

PATIENT
  Age: 77 Year
  Sex: Male

DRUGS (2)
  1. APIDRA [Suspect]
     Active Substance: INSULIN GLULISINE
     Indication: PRODUCT USED FOR UNKNOWN INDICATION
     Dosage: DOSE: 3 OR 5 UNITS AT EITHER LUNCH OR TEA TIME
     Route: 065
  2. LANTUS [Suspect]
     Active Substance: INSULIN GLARGINE
     Indication: PRODUCT USED FOR UNKNOWN INDICATION
     Dosage: DOSE:6 UNIT(S)
     Route: 065

REACTIONS (3)
  - Dialysis [Unknown]
  - Blood glucose decreased [Unknown]
  - Anxiety disorder [Unknown]
